FAERS Safety Report 7417460-4 (Version None)
Quarter: 2011Q2

REPORT INFORMATION
  Report Type: 
  Country: None (occurrence: None)
  Receive Date: 20110415
  Receipt Date: 20110407
  Transmission Date: 20111010
  Serious: Yes (Hospitalization, Other)
  Sender: FDA-Public Use
  Company Number: US-AMGEN-USASP2010008759

PATIENT
  Age: 65 Year
  Sex: Female

DRUGS (1)
  1. PROLIA [Suspect]
     Indication: OSTEOPOROSIS POSTMENOPAUSAL
     Dosage: 60 MG, Q6MO
     Dates: start: 20101102

REACTIONS (7)
  - RASH [None]
  - ANXIETY [None]
  - THROMBOSIS [None]
  - PALPITATIONS [None]
  - INFECTION [None]
  - DYSPNOEA [None]
  - OEDEMA [None]
